FAERS Safety Report 22307338 (Version 2)
Quarter: 2023Q2

REPORT INFORMATION
  Report Type: Other
  Country: US (occurrence: None)
  Receive Date: 20230511
  Receipt Date: 20230619
  Transmission Date: 20230722
  Serious: Yes (Other)
  Sender: FDA-Public Use
  Company Number: US-ROCHE-3284698

PATIENT
  Age: 41 Year
  Sex: Female

DRUGS (5)
  1. OCREVUS [Suspect]
     Active Substance: OCRELIZUMAB
     Indication: Multiple sclerosis
     Dosage: THEN 600 MG EVERY SIX MONTHS, DATE OF TREATMENT: /NOV/2021, AND 08/JUL/2022
     Route: 042
     Dates: start: 202004, end: 20230125
  2. KESIMPTA [Concomitant]
     Active Substance: OFATUMUMAB
     Route: 058
  3. HIPREX (UNITED STATES) [Concomitant]
     Indication: Product used for unknown indication
     Route: 048
     Dates: start: 20230124
  4. LAMISIL [Concomitant]
     Active Substance: TERBINAFINE HYDROCHLORIDE
     Dosage: TOPICALLY ON LEFT GREAT TOENAIL,
     Route: 061
  5. METHENAMINE HIPPURATE [Concomitant]
     Active Substance: METHENAMINE HIPPURATE
     Dosage: 1GM TABLETS ONCE DAILY

REACTIONS (2)
  - Urinary tract infection [Unknown]
  - Colitis [Unknown]

NARRATIVE: CASE EVENT DATE: 20220601
